FAERS Safety Report 9857400 (Version 1)
Quarter: 2014Q1

REPORT INFORMATION
  Report Type: Report from Study
  Country: GB (occurrence: GB)
  Receive Date: 20140131
  Receipt Date: 20140131
  Transmission Date: 20141002
  Serious: Yes (Hospitalization, Other)
  Sender: FDA-Public Use
  Company Number: GB-PFIZER INC-2014022301

PATIENT
  Age: 64 Year
  Sex: Male

DRUGS (6)
  1. IBUPROFEN [Suspect]
     Indication: OSTEOARTHRITIS
     Dosage: 400 MG, 3X/DAY
     Route: 048
     Dates: start: 20100915
  2. ACETYLSALICYLIC ACID [Concomitant]
     Dosage: 150 MG, 1X/DAY
     Dates: start: 20131105
  3. GLYCERYL TRINITRATE [Concomitant]
     Dosage: UNK
     Dates: start: 20131105
  4. MONTELUKAST [Concomitant]
     Dosage: UNK
     Dates: start: 20080509
  5. SALBUTAMOL [Concomitant]
     Indication: ASTHMA
     Dosage: 100 MCG
     Route: 055
     Dates: start: 20030110
  6. SERETIDE [Concomitant]
     Dosage: 125 EVOHALER AT A 2 PUFF UNIT DOSE
     Dates: start: 20050523

REACTIONS (1)
  - Chest pain [Recovered/Resolved]
